FAERS Safety Report 6491659-6 (Version None)
Quarter: 2009Q4

REPORT INFORMATION
  Report Type: 
  Country: None (occurrence: None)
  Receive Date: 20091207
  Receipt Date: 20091118
  Transmission Date: 20100525
  Serious: Yes (Other)
  Sender: FDA-Public Use
  Company Number: 20090552

PATIENT
  Sex: Male

DRUGS (12)
  1. VENOFER (IRON SUCROSE INJECTION-VIFOR) [Suspect]
  2. ALFACALCIDOL     (VITAMIN D) [Concomitant]
  3. DALTEPARIN [Concomitant]
  4. FOLIC ACID [Concomitant]
  5. EPOGEN [Concomitant]
  6. IPRATROPIUM BROMIDE [Concomitant]
  7. HYDROQUININE [Concomitant]
  8. ALBUTEROL [Concomitant]
  9. BUDESONIDE [Concomitant]
  10. ALBUTEROL SULFATE AUTOHALER [Concomitant]
  11. CALCIUM CARBONATE [Concomitant]
  12. OXYBUTYNIN CHLORIDE [Concomitant]

REACTIONS (1)
  - PULMONARY EMBOLISM [None]
